FAERS Safety Report 6828492-9 (Version None)
Quarter: 2010Q3

REPORT INFORMATION
  Report Type: 
  Country: None (occurrence: None)
  Receive Date: 20100709
  Receipt Date: 20070209
  Transmission Date: 20110219
  Serious: No
  Sender: FDA-Public Use
  Company Number: US-PFIZER INC-2007011349

PATIENT
  Sex: Female
  Weight: 49.9 kg

DRUGS (3)
  1. CHANTIX [Suspect]
     Indication: EX-TOBACCO USER
     Dates: start: 20070101
  2. SYNTHROID [Concomitant]
  3. PREMARIN [Concomitant]

REACTIONS (1)
  - MEDICAL DEVICE REMOVAL [None]
